FAERS Safety Report 8947618 (Version 2)
Quarter: 2012Q4

REPORT INFORMATION
  Report Type: 
  Country: US (occurrence: US)
  Receive Date: 20121204
  Receipt Date: 20121204
  Transmission Date: 20130627
  Serious: No
  Sender: FDA-Public Use
  Company Number: US-ABBOTT-12P-163-0893243-00

PATIENT
  Sex: Male
  Weight: 14.07 kg

DRUGS (2)
  1. OMNICEF [Suspect]
     Indication: SINUSITIS
     Dosage: In 4 ml formulation
  2. SINGULAIR [Concomitant]
     Indication: RHINORRHOEA

REACTIONS (1)
  - Faeces discoloured [Not Recovered/Not Resolved]
